FAERS Safety Report 4290916-1 (Version None)
Quarter: 2004Q1

REPORT INFORMATION
  Report Type: 
  Country: None (occurrence: None)
  Receive Date: 20040209
  Receipt Date: 20040127
  Transmission Date: 20041129
  Serious: Yes (Hospitalization)
  Sender: FDA-Public Use
  Company Number: 2004AP00557

PATIENT
  Age: 67 Year
  Sex: Male

DRUGS (10)
  1. TENORMIN [Suspect]
     Indication: HYPERTENSION
     Dosage: 100 MG DAILY PO
     Route: 048
     Dates: start: 20030218
  2. NORVASC [Suspect]
  3. ALMARL [Suspect]
     Indication: HYPERTENSION
     Dosage: 40 MG DAILY PO
     Route: 048
     Dates: start: 20020606
  4. EPADEL [Suspect]
     Indication: ATHEROSCLEROSIS OBLITERANS
     Dosage: 5400 MG DAILY PO
     Route: 048
     Dates: start: 20020513
  5. TICPILONE [Suspect]
     Indication: ATHEROSCLEROSIS OBLITERANS
     Dosage: 400 MG DAILY PO
     Route: 048
     Dates: start: 20021226
  6. ASPIRIN [Suspect]
     Indication: ATHEROSCLEROSIS OBLITERANS
     Dosage: 100 MG DAILY PO
     Route: 048
     Dates: start: 20021226
  7. PERDIPINA [Concomitant]
  8. GASTER [Concomitant]
  9. MEILAX [Concomitant]
  10. LAMISIL [Concomitant]

REACTIONS (1)
  - COLON CANCER [None]
